FAERS Safety Report 7364991-1 (Version None)
Quarter: 2011Q1

REPORT INFORMATION
  Report Type: 
  Country: None (occurrence: None)
  Receive Date: 20110321
  Receipt Date: 20110311
  Transmission Date: 20110831
  Serious: Yes (Hospitalization, Other)
  Sender: FDA-Public Use
  Company Number: US-PFIZER INC-2006031823

PATIENT
  Sex: Male

DRUGS (11)
  1. HYDROCHLOROTHIAZIDE [Suspect]
     Indication: BLOOD PRESSURE
     Dosage: UNK
  2. NEURONTIN [Suspect]
     Indication: PAIN
     Dosage: 300 MG, 3X/DAY
  3. VERAPAMIL HCL [Suspect]
     Indication: BLOOD PRESSURE
     Dosage: UNK
  4. ACETAMINOPHEN [Concomitant]
     Dosage: UNK
     Route: 065
  5. CLONIDINE [Suspect]
     Indication: BLOOD PRESSURE
     Dosage: UNK
  6. VISTARIL [Concomitant]
     Dosage: UNK
  7. PAXIL [Concomitant]
     Dosage: UNK
  8. LISINOPRIL [Concomitant]
     Dosage: UNK
  9. NORVASC [Concomitant]
     Dosage: UNK
  10. NEURONTIN [Suspect]
     Dosage: 100 MG, 3X/DAY
  11. MOTRIN [Concomitant]
     Dosage: UNK

REACTIONS (6)
  - SUICIDAL IDEATION [None]
  - OVERDOSE [None]
  - HYPOTENSION [None]
  - HOMICIDAL IDEATION [None]
  - PARANOIA [None]
  - DEPRESSION [None]
